FAERS Safety Report 11689088 (Version 2)
Quarter: 2016Q1

REPORT INFORMATION
  Report Type: Spontaneous
  Country: DE (occurrence: DE)
  Receive Date: 20151102
  Receipt Date: 20160104
  Transmission Date: 20160525
  Serious: Yes (Hospitalization)
  Sender: FDA-Public Use
  Company Number: DE-AUROBINDO-AUR-APL-2015-09823

PATIENT
  Age: 59 Year
  Sex: Female
  Weight: 60 kg

DRUGS (1)
  1. BISOPROLOL [Suspect]
     Active Substance: BISOPROLOL
     Indication: SUPRAVENTRICULAR EXTRASYSTOLES
     Dosage: 1.25 MG, DAILY
     Route: 048
     Dates: start: 20150917, end: 20150924

REACTIONS (2)
  - Sudden hearing loss [Recovering/Resolving]
  - Deafness unilateral [Recovering/Resolving]

NARRATIVE: CASE EVENT DATE: 20150924
